FAERS Safety Report 19064616 (Version 1)
Quarter: 2021Q1

REPORT INFORMATION
  Report Type: Report from Study
  Country: US (occurrence: US)
  Receive Date: 20210326
  Receipt Date: 20210326
  Transmission Date: 20210420
  Serious: Yes (Other)
  Sender: FDA-Public Use
  Company Number: US-JNJFOC-20210345830

PATIENT
  Age: 42 Year
  Sex: Female
  Weight: 61.16 kg

DRUGS (1)
  1. ELMIRON [Suspect]
     Active Substance: PENTOSAN POLYSULFATE SODIUM
     Indication: CYSTITIS INTERSTITIAL
     Dosage: DOSE BY BODY WEIGHT ?4.87 MG/KG, CUMULATIVE DOSE IS 1862 G.
     Route: 065

REACTIONS (1)
  - Maculopathy [Unknown]
